FAERS Safety Report 26128574 (Version 1)
Quarter: 2025Q4

REPORT INFORMATION
  Report Type: Spontaneous
  Country: BR (occurrence: BR)
  Receive Date: 20251207
  Receipt Date: 20251207
  Transmission Date: 20260118
  Serious: Yes (Death, Other)
  Sender: PHARMOBEDIENT CONSULTING, LLC
  Company Number: BR-Pharmobedient-000580

PATIENT
  Age: 59 Year
  Sex: Male

DRUGS (4)
  1. OXALIPLATIN [Suspect]
     Active Substance: OXALIPLATIN
     Indication: Oesophageal adenocarcinoma
     Dosage: 6 CYCLES
  2. FLUOROURACIL [Suspect]
     Active Substance: FLUOROURACIL
     Indication: Oesophageal adenocarcinoma
     Dosage: 6 CYCLE
  3. NIVOLUMAB [Suspect]
     Active Substance: NIVOLUMAB
     Indication: Oesophageal adenocarcinoma
     Dosage: 6 CYCLE
  4. LEUCOVORIN [Suspect]
     Active Substance: LEUCOVORIN\LEUCOVORIN CALCIUM
     Indication: Oesophageal adenocarcinoma
     Dosage: 6 CYCLE

REACTIONS (5)
  - Disease progression [Fatal]
  - Pulmonary embolism [Fatal]
  - Seizure [Fatal]
  - Pneumonia [Fatal]
  - Intracranial pressure increased [Fatal]
